FAERS Safety Report 5388471-8 (Version None)
Quarter: 2007Q3

REPORT INFORMATION
  Report Type: 
  Country: None (occurrence: None)
  Receive Date: 20070716
  Receipt Date: 20070707
  Transmission Date: 20080115
  Serious: Yes (Other)
  Sender: FDA-Public Use
  Company Number: GB-ROCHE-506497

PATIENT
  Age: 45 Year
  Sex: Female
  Weight: 114.7 kg

DRUGS (1)
  1. XENICAL [Suspect]
     Indication: OBESITY
     Route: 048
     Dates: start: 20070514

REACTIONS (2)
  - SUICIDAL IDEATION [None]
  - WEIGHT LOSS POOR [None]
